FAERS Safety Report 9912692 (Version 1)
Quarter: 2014Q1

REPORT INFORMATION
  Report Type: Spontaneous
  Country: IT (occurrence: None)
  Receive Date: 20140214
  Receipt Date: 20140214
  Transmission Date: 20141002
  Serious: Yes (Hospitalization)
  Sender: FDA-Public Use
  Company Number: 2014AP001207

PATIENT
  Age: 90 Year
  Sex: Male

DRUGS (12)
  1. LEVOFLOXACIN [Suspect]
     Indication: BRONCHITIS
     Route: 048
     Dates: start: 20131007, end: 20131013
  2. COUMADIN SODIUM [Suspect]
     Indication: ATRIAL FIBRILLATION
     Dates: start: 20131014, end: 20131014
  3. SOLOSA (GLIMEPIRIDE) [Concomitant]
  4. ZYLORIC (ALLOPURINOL) [Concomitant]
  5. TORVAST (ATORVASTATIN CALCIUM) [Concomitant]
  6. STILNOX (ZOPIDEM TARTRATE) [Concomitant]
  7. LASIX /00032601/ (FUROSEMIDE) UNK, UNKUNK [Concomitant]
  8. METFORMIN (METFORMIN) [Concomitant]
  9. ESOMEPRAZOLE MAGNESIUM (ESOMEPRAZOLE MAGNESIUM) [Concomitant]
  10. LEVODOPA (LEVODOPA) [Concomitant]
  11. FINASTERIDE (FINASTERIDE) [Concomitant]
  12. BISOPROLOL FUMARATE (BISOPROLOL FUMARATE) [Concomitant]

REACTIONS (2)
  - Drug interaction [None]
  - Hypocoagulable state [None]
